FAERS Safety Report 9154675 (Version 1)
Quarter: 2013Q1

REPORT INFORMATION
  Report Type: Spontaneous
  Country: GB (occurrence: GB)
  Receive Date: 20130311
  Receipt Date: 20130311
  Transmission Date: 20140127
  Serious: Yes (Other)
  Sender: FDA-Public Use
  Company Number: GB-ASTRAZENECA-2013SE14022

PATIENT
  Age: 35 Year
  Sex: Female

DRUGS (5)
  1. SYMBICORT [Suspect]
     Indication: ASTHMA
     Dosage: UNKNOWN STRENGTH AND FREQUENCY
     Route: 055
  2. BENDROFLUMETHIAZIDE [Suspect]
     Indication: BLOOD PRESSURE ABNORMAL
     Route: 048
     Dates: start: 2005
  3. BUSCOPAN [Concomitant]
     Indication: DIARRHOEA
     Dosage: 1 DF
     Dates: end: 20120218
  4. CARIBAN [Concomitant]
     Indication: DIARRHOEA
     Dosage: 1 DF
     Dates: end: 20120218
  5. IMODIUM [Concomitant]
     Indication: DIARRHOEA
     Dosage: 1 DF
     Dates: end: 20120218

REACTIONS (2)
  - Exposure during pregnancy [Unknown]
  - Abortion spontaneous [Unknown]
